FAERS Safety Report 23443602 (Version 14)
Quarter: 2025Q1

REPORT INFORMATION
  Report Type: Spontaneous
  Country: CA (occurrence: CA)
  Receive Date: 20240125
  Receipt Date: 20250117
  Transmission Date: 20250409
  Serious: Yes (Other)
  Sender: PFIZER
  Company Number: CA-PFIZER INC-202400021037

PATIENT
  Age: 27 Year
  Sex: Female

DRUGS (7)
  1. ABRILADA [Suspect]
     Active Substance: ADALIMUMAB-AFZB
     Indication: Crohn^s disease
     Route: 058
     Dates: start: 20231228
  2. ABRILADA [Suspect]
     Active Substance: ADALIMUMAB-AFZB
     Indication: Crohn^s disease
     Route: 058
     Dates: start: 2024
  3. ABRILADA [Suspect]
     Active Substance: ADALIMUMAB-AFZB
     Route: 058
     Dates: start: 202406
  4. METHOTREXATE SODIUM [Suspect]
     Active Substance: METHOTREXATE SODIUM
     Indication: Crohn^s disease
     Route: 065
     Dates: start: 202012
  5. ENTOCORT [Suspect]
     Active Substance: BUDESONIDE
     Indication: Crohn^s disease
  6. CIPROFLOXACIN [Concomitant]
     Active Substance: CIPROFLOXACIN
  7. METRONIDAZOLE [Concomitant]
     Active Substance: METRONIDAZOLE

REACTIONS (7)
  - Anal abscess [Unknown]
  - Anal fistula [Recovering/Resolving]
  - Abscess [Recovered/Resolved]
  - Maternal exposure during pregnancy [Unknown]
  - Pain [Unknown]
  - Condition aggravated [Unknown]
  - Sacral pain [Unknown]

NARRATIVE: CASE EVENT DATE: 20240101
